FAERS Safety Report 22069128 (Version 1)
Quarter: 2023Q1

REPORT INFORMATION
  Report Type: Spontaneous
  Country: US (occurrence: US)
  Receive Date: 20230307
  Receipt Date: 20230307
  Transmission Date: 20230417
  Serious: No
  Sender: FDA-Public Use
  Company Number: US-AMNEAL PHARMACEUTICALS-2022-AMRX-01244

PATIENT
  Age: 81 Year

DRUGS (1)
  1. RYTARY [Suspect]
     Active Substance: CARBIDOPA\LEVODOPA
     Indication: Product used for unknown indication
     Dosage: 61.25/245MG, 2 CAPSULE 3 /DAY AT 8 AM, 2PM AND 8PM
     Route: 048

REACTIONS (1)
  - Gait inability [Unknown]

NARRATIVE: CASE EVENT DATE: 20220502
